FAERS Safety Report 13124903 (Version 1)
Quarter: 2017Q1

REPORT INFORMATION
  Report Type: Spontaneous
  Country: IL (occurrence: IL)
  Receive Date: 20170118
  Receipt Date: 20170118
  Transmission Date: 20170428
  Serious: Yes (Other)
  Sender: FDA-Public Use
  Company Number: IL-009507513-1701ISR003717

PATIENT
  Sex: Female

DRUGS (1)
  1. ISENTRESS [Suspect]
     Active Substance: RALTEGRAVIR POTASSIUM
     Indication: PROPHYLAXIS
     Dosage: UNK, BID
     Route: 048

REACTIONS (6)
  - Liver injury [Unknown]
  - Diarrhoea [Unknown]
  - Physical assault [Unknown]
  - Vomiting [Unknown]
  - Alopecia [Unknown]
  - Gastrointestinal disorder [Unknown]
